FAERS Safety Report 8872238 (Version 1)
Quarter: 2012Q4

REPORT INFORMATION
  Report Type: Report from Study
  Country: JP (occurrence: JP)
  Receive Date: 20121029
  Receipt Date: 20121029
  Transmission Date: 20130627
  Serious: Yes (Other)
  Sender: FDA-Public Use
  Company Number: JP-VERTEX PHARMACEUTICAL INC.-AE-2012-005682

PATIENT
  Age: 65 Year
  Sex: Male

DRUGS (8)
  1. VX-950 [Suspect]
     Indication: HEPATITIS C
     Dosage: 2250 mg, UNK
     Route: 048
     Dates: start: 20120214, end: 20120228
  2. VX-950 [Suspect]
     Dosage: 1500 mg, UNK
     Route: 048
     Dates: start: 20120229, end: 20120327
  3. REBETOL [Suspect]
     Indication: HEPATITIS C
     Route: 048
     Dates: start: 20120214, end: 20120228
  4. REBETOL [Suspect]
     Route: 048
     Dates: start: 20120229, end: 20120327
  5. PEGINTERFERON ALFA-2B [Suspect]
     Indication: HEPATITIS C
     Route: 058
     Dates: start: 20120214, end: 20120305
  6. PEGINTERFERON ALFA-2B [Suspect]
     Route: 058
     Dates: start: 20120306, end: 20120327
  7. SEIBULE [Concomitant]
     Dosage: 150 mg, UNK
     Route: 048
  8. METGLUCO [Concomitant]
     Route: 048

REACTIONS (3)
  - Pancreatitis acute [Recovered/Resolved]
  - White blood cell count decreased [Not Recovered/Not Resolved]
  - Blood uric acid increased [Recovered/Resolved]
